FAERS Safety Report 4608952-1 (Version None)
Quarter: 2005Q1

REPORT INFORMATION
  Report Type: 
  Country: None (occurrence: None)
  Receive Date: 20050311
  Receipt Date: 20050225
  Transmission Date: 20050727
  Serious: Yes (Hospitalization)
  Sender: FDA-Public Use
  Company Number: 2000-BP-01234

PATIENT
  Age: 19 Year
  Sex: Female

DRUGS (5)
  1. VIRAMUNE [Suspect]
     Indication: HIV INFECTION
     Dosage: 400 MG (200 MG, 1 TABLET BID), PO
     Route: 048
     Dates: start: 19990913
  2. FTC (BLIND) [Concomitant]
  3. 3TC (BLIND) [Concomitant]
  4. STAVUDINE [Concomitant]
  5. IRON SUPPLEMENT (IRON SUPPLEMENT) [Concomitant]

REACTIONS (8)
  - ABORTION SPONTANEOUS [None]
  - DRUG EXPOSURE DURING PREGNANCY [None]
  - IRON DEFICIENCY ANAEMIA [None]
  - PELVIC PAIN [None]
  - PREGNANCY [None]
  - PYREXIA [None]
  - VAGINAL DISCHARGE [None]
  - VAGINAL HAEMORRHAGE [None]
